FAERS Safety Report 8185950-5 (Version None)
Quarter: 2012Q1

REPORT INFORMATION
  Report Type: 
  Country: None (occurrence: None)
  Receive Date: 20120305
  Receipt Date: 20120227
  Transmission Date: 20120608
  Serious: Yes (Other)
  Sender: FDA-Public Use
  Company Number: US-ASTRAZENECA-2010SE37946

PATIENT
  Age: 61 Year
  Sex: Male
  Weight: 123.4 kg

DRUGS (9)
  1. RISPERIDONE [Concomitant]
  2. SEROQUEL [Suspect]
     Indication: BIPOLAR I DISORDER
     Route: 048
  3. SEROQUEL [Interacting]
     Route: 048
     Dates: start: 20090101
  4. SEROQUEL [Interacting]
     Dosage: HALF TABLET IN MORNING AND ONE TABLET AT NIGHT
     Route: 048
  5. COUMADIN [Interacting]
     Route: 065
  6. AMIODARONE HCL [Concomitant]
  7. SEROQUEL [Interacting]
     Route: 048
  8. SEROQUEL [Interacting]
     Route: 048
  9. HYDROGEN PEROXIDE SOLUTION [Concomitant]

REACTIONS (30)
  - TRANSIENT ISCHAEMIC ATTACK [None]
  - HEADACHE [None]
  - PERIORBITAL HAEMATOMA [None]
  - TRACHEAL DISORDER [None]
  - MEMORY IMPAIRMENT [None]
  - AMNESIA [None]
  - EYE INFLAMMATION [None]
  - DRUG INTERACTION [None]
  - HEAD INJURY [None]
  - FEELING ABNORMAL [None]
  - LIMB DISCOMFORT [None]
  - DARK CIRCLES UNDER EYES [None]
  - DAYDREAMING [None]
  - ADVERSE EVENT [None]
  - SOMNOLENCE [None]
  - BACK DISORDER [None]
  - TONGUE BITING [None]
  - LIP INJURY [None]
  - TOOTHACHE [None]
  - DRUG DISPENSING ERROR [None]
  - VASCULAR RUPTURE [None]
  - CONTUSION [None]
  - EYE INFECTION [None]
  - WRONG TECHNIQUE IN DRUG USAGE PROCESS [None]
  - HAEMATOMA [None]
  - NERVOUS SYSTEM DISORDER [None]
  - MALAISE [None]
  - OROPHARYNGEAL PAIN [None]
  - DIZZINESS [None]
  - DRUG DOSE OMISSION [None]
